FAERS Safety Report 9854747 (Version 3)
Quarter: 2014Q1

REPORT INFORMATION
  Report Type: Spontaneous
  Country: US (occurrence: US)
  Receive Date: 20140130
  Receipt Date: 20140316
  Transmission Date: 20141002
  Serious: Yes (Other)
  Sender: FDA-Public Use
  Company Number: US-JNJFOC-20140113579

PATIENT
  Age: 27 Year
  Sex: Female
  Weight: 45.36 kg

DRUGS (3)
  1. IMODIUM A-D LIQUID [Suspect]
     Route: 048
  2. IMODIUM A-D LIQUID [Suspect]
     Indication: INFECTION
     Dosage: STANDARD DOSING, AFTER AN HOUR IF NEEDED
     Route: 048
     Dates: end: 2013
  3. LOMOTIL [Concomitant]
     Indication: COLITIS ULCERATIVE
     Dosage: AS NEEDED, STARTED ON AN UNSPECIFIED DATE AND YEAR IN OCT
     Route: 065

REACTIONS (3)
  - Paralysis [Unknown]
  - Overdose [Unknown]
  - Drug ineffective [Unknown]
